FAERS Safety Report 9016025 (Version 1)
Quarter: 2013Q1

REPORT INFORMATION
  Report Type: Spontaneous
  Country: US (occurrence: US)
  Receive Date: 20130116
  Receipt Date: 20130116
  Transmission Date: 20140127
  Serious: Yes (Death)
  Sender: FDA-Public Use
  Company Number: US-ROXANE LABORATORIES, INC.-2013-RO-00070RO

PATIENT
  Age: 48 Year
  Sex: Male

DRUGS (3)
  1. CITALOPRAM [Suspect]
  2. KEPPRA [Suspect]
  3. CYCLOBENZAPRINE [Suspect]

REACTIONS (2)
  - Toxicity to various agents [Fatal]
  - Completed suicide [Fatal]
